FAERS Safety Report 4642464-4 (Version None)
Quarter: 2005Q2

REPORT INFORMATION
  Report Type: 
  Country: None (occurrence: None)
  Receive Date: 20050422
  Receipt Date: 20050413
  Transmission Date: 20051028
  Serious: Yes (Hospitalization)
  Sender: FDA-Public Use
  Company Number: US-ROCHE-401683

PATIENT
  Age: 45 Year
  Sex: Female
  Weight: 90.3 kg

DRUGS (9)
  1. CAPECITABINE [Suspect]
     Indication: BREAST CANCER
     Dosage: GIVEN ON DAYS 1 - 14 OF A 3 WEEK CYCLE.
     Route: 048
     Dates: start: 20050308
  2. DOCETAXEL [Suspect]
     Indication: BREAST CANCER
     Dosage: GIVEN ON DAY 1 OF A 3 WEEK CYCLE.
     Route: 042
     Dates: start: 20050308
  3. MICARDIS [Concomitant]
  4. AMARYL [Concomitant]
  5. AVANDIA [Concomitant]
  6. VICODIN [Concomitant]
  7. HEMOCYTE [Concomitant]
  8. SYNTHROID [Concomitant]
  9. IBUPROFEN [Concomitant]

REACTIONS (12)
  - DIABETES MELLITUS [None]
  - DIARRHOEA [None]
  - DIFFICULTY IN WALKING [None]
  - DRUG INEFFECTIVE [None]
  - DYSAESTHESIA [None]
  - FEELING ABNORMAL [None]
  - MYOSITIS [None]
  - RASH [None]
  - SINUS TACHYCARDIA [None]
  - SKIN OEDEMA [None]
  - SPINAL OSTEOARTHRITIS [None]
  - UTERINE LEIOMYOMA [None]
